FAERS Safety Report 15483384 (Version 1)
Quarter: 2018Q4

REPORT INFORMATION
  Report Type: Spontaneous
  Country: US (occurrence: US)
  Receive Date: 20181010
  Receipt Date: 20181010
  Transmission Date: 20190205
  Serious: Yes (Other)
  Sender: FDA-Public Use
  Company Number: None

PATIENT
  Age: 55 Year
  Sex: Female
  Weight: 85.5 kg

DRUGS (3)
  1. CAPECITABINE. [Suspect]
     Active Substance: CAPECITABINE
     Indication: COLON CANCER
     Route: 048
     Dates: start: 20180625
  2. CAPECITABINE. [Concomitant]
     Active Substance: CAPECITABINE
  3. LISINORPIL [Concomitant]

REACTIONS (2)
  - Condition aggravated [None]
  - Anal fistula [None]

NARRATIVE: CASE EVENT DATE: 20181010
